FAERS Safety Report 10213925 (Version 1)
Quarter: 2014Q2

REPORT INFORMATION
  Report Type: Spontaneous
  Country: TW (occurrence: None)
  Receive Date: 20140529
  Receipt Date: 20140529
  Transmission Date: 20141212
  Serious: Yes (Other)
  Sender: FDA-Public Use
  Company Number: IMP_07663_2014

PATIENT
  Age: 45 Year
  Sex: Female

DRUGS (5)
  1. VALPROIC ACID [Suspect]
     Indication: DYSPHORIA
  2. VALPROIC ACID [Suspect]
     Indication: IRRITABILITY
  3. LAMOTRIGINE [Suspect]
     Indication: DEPRESSED MOOD
  4. LAMOTRIGINE [Suspect]
     Indication: SLEEP DISORDER
  5. VENLAFAXINE [Concomitant]

REACTIONS (6)
  - Rash [None]
  - Pruritus [None]
  - Pyrexia [None]
  - Chills [None]
  - Oral mucosal blistering [None]
  - Rash [None]
